FAERS Safety Report 18110348 (Version 3)
Quarter: 2020Q3

REPORT INFORMATION
  Report Type: Report from Study
  Country: IN (occurrence: IN)
  Receive Date: 20200804
  Receipt Date: 20200818
  Transmission Date: 20201103
  Serious: Yes (Death, Hospitalization)
  Sender: FDA-Public Use
  Company Number: IN-EISAI MEDICAL RESEARCH-EC-2020-078365

PATIENT
  Age: 62 Year
  Sex: Male

DRUGS (1)
  1. LENVIMA [Suspect]
     Active Substance: LENVATINIB
     Indication: HEPATOCELLULAR CARCINOMA
     Route: 048
     Dates: start: 20190715, end: 202007

REACTIONS (8)
  - Pain [Unknown]
  - Hypophagia [Unknown]
  - Malignant neoplasm progression [Fatal]
  - Oropharyngeal pain [Unknown]
  - Blood sodium decreased [Not Recovered/Not Resolved]
  - Pain in extremity [Unknown]
  - Fluid intake reduced [Unknown]
  - Pruritus [Unknown]

NARRATIVE: CASE EVENT DATE: 202007
